FAERS Safety Report 10619737 (Version 1)
Quarter: 2014Q4

REPORT INFORMATION
  Report Type: Spontaneous
  Country: GB (occurrence: None)
  Receive Date: 20141126
  Receipt Date: 20141126
  Transmission Date: 20150529
  Serious: Yes (Other)
  Sender: FDA-Public Use
  Company Number: GB-ALKEM-000767

PATIENT
  Age: 54 Year
  Sex: Female
  Weight: 95 kg

DRUGS (4)
  1. CITALOPRAM (CITALOPRAM) [Concomitant]
     Active Substance: CITALOPRAM HYDROBROMIDE
  2. LEVOTHROXINE (LEVOTHROXINE) [Concomitant]
  3. HEPARIN [Concomitant]
     Active Substance: HEPARIN SODIUM
  4. QUETIAPINE (QUETIAPINE) [Suspect]
     Active Substance: QUETIAPINE
     Indication: ANXIETY
     Dosage: 200.00000000 MG
     Route: 048
     Dates: end: 20141104

REACTIONS (10)
  - Diarrhoea [None]
  - Deep vein thrombosis [None]
  - Dyskinesia [None]
  - Hallucination, visual [None]
  - Muscle spasms [None]
  - Headache [None]
  - Tinnitus [None]
  - Dry mouth [None]
  - Spinal pain [None]
  - Peripheral swelling [None]
